FAERS Safety Report 18054165 (Version 1)
Quarter: 2020Q3

REPORT INFORMATION
  Report Type: Report from Study
  Country: AR (occurrence: AR)
  Receive Date: 20200722
  Receipt Date: 20200722
  Transmission Date: 20201103
  Serious: Yes (Other)
  Sender: FDA-Public Use
  Company Number: NVSC2019AR052575

PATIENT
  Age: 67 Year
  Sex: Female

DRUGS (4)
  1. TAFINLAR [Suspect]
     Active Substance: DABRAFENIB MESYLATE
     Indication: METASTATIC MALIGNANT MELANOMA
     Dosage: 300 MG, QD
     Route: 065
     Dates: start: 20191125, end: 20191126
  2. TAFINLAR [Suspect]
     Active Substance: DABRAFENIB MESYLATE
     Dosage: 150 MG, QD
     Route: 048
     Dates: start: 201911, end: 202004
  3. MEKINIST [Suspect]
     Active Substance: TRAMETINIB DIMETHYL SULFOXIDE
     Dosage: 2 MG, QD
     Route: 048
     Dates: start: 201911, end: 202004
  4. MEKINIST [Suspect]
     Active Substance: TRAMETINIB DIMETHYL SULFOXIDE
     Indication: METASTATIC MALIGNANT MELANOMA
     Dosage: 2 MG, QD
     Route: 065
     Dates: start: 20191125, end: 20191126

REACTIONS (11)
  - Diarrhoea [Recovered/Resolved]
  - Pain [Recovering/Resolving]
  - Pyrexia [Recovered/Resolved]
  - Hypersensitivity [Recovered/Resolved]
  - Hypoacusis [Unknown]
  - Swelling [Recovered/Resolved]
  - Muscle spasms [Recovering/Resolving]
  - Oedema [Recovered/Resolved]
  - Vomiting [Recovered/Resolved]
  - Rash [Recovered/Resolved]
  - Visual impairment [Recovered/Resolved]

NARRATIVE: CASE EVENT DATE: 20191125
